FAERS Safety Report 8842183 (Version 1)
Quarter: 2012Q4

REPORT INFORMATION
  Report Type: Spontaneous
  Country: US (occurrence: None)
  Receive Date: 20121015
  Receipt Date: 20121015
  Transmission Date: 20130627
  Serious: Yes (Other)
  Sender: FDA-Public Use
  Company Number: None

PATIENT
  Age: 21 Year
  Sex: Female
  Weight: 49.9 kg

DRUGS (1)
  1. SERTRALINE [Suspect]
     Indication: BEHAVIOR DISORDER
     Route: 048
     Dates: start: 20120629, end: 20121008

REACTIONS (7)
  - Abnormal behaviour [None]
  - Condition aggravated [None]
  - Anxiety [None]
  - Crying [None]
  - Obsessive-compulsive disorder [None]
  - Aggression [None]
  - Product substitution issue [None]
